FAERS Safety Report 23090239 (Version 4)
Quarter: 2025Q1

REPORT INFORMATION
  Report Type: Spontaneous
  Country: US (occurrence: US)
  Receive Date: 20231020
  Receipt Date: 20250102
  Transmission Date: 20250409
  Serious: No
  Sender: PFIZER
  Company Number: US-PFIZER INC-202300297882

PATIENT
  Age: 31 Year
  Sex: Female
  Weight: 52.61 kg

DRUGS (14)
  1. CIBINQO [Suspect]
     Active Substance: ABROCITINIB
     Route: 048
     Dates: start: 20230907
  2. DUPIXENT [Suspect]
     Active Substance: DUPILUMAB
     Indication: Asthma
     Route: 058
     Dates: start: 201907, end: 20230906
  3. DUPIXENT [Suspect]
     Active Substance: DUPILUMAB
     Indication: Dermatitis atopic
  4. DUPIXENT [Suspect]
     Active Substance: DUPILUMAB
     Indication: Idiopathic urticaria
  5. FLUCONAZOLE [Concomitant]
     Active Substance: FLUCONAZOLE
  6. PIMECROLIMUS [Concomitant]
     Active Substance: PIMECROLIMUS
  7. METRONIDAZOLE [Concomitant]
     Active Substance: METRONIDAZOLE
  8. TACROLIMUS [Concomitant]
     Active Substance: TACROLIMUS
  9. NEXPLANON [Concomitant]
     Active Substance: ETONOGESTREL
  10. MUPIROCIN [Concomitant]
     Active Substance: MUPIROCIN
  11. PHENAZOPYRIDINE [Concomitant]
     Active Substance: PHENAZOPYRIDINE
  12. IBUPROFEN [Concomitant]
     Active Substance: IBUPROFEN
  13. BETAMETHASONE DIPROPIONATE [Concomitant]
     Active Substance: BETAMETHASONE DIPROPIONATE
  14. CLOTRIMAZOLE [Concomitant]
     Active Substance: CLOTRIMAZOLE

REACTIONS (6)
  - Dizziness [Not Recovered/Not Resolved]
  - Lip dry [Unknown]
  - Chapped lips [Unknown]
  - Lip erythema [Unknown]
  - Cheilitis [Unknown]
  - Conjunctivitis [Unknown]

NARRATIVE: CASE EVENT DATE: 20230901
